FAERS Safety Report 4661517-8 (Version None)
Quarter: 2005Q2

REPORT INFORMATION
  Report Type: 
  Country: None (occurrence: None)
  Receive Date: 20050502
  Receipt Date: 20050104
  Transmission Date: 20051028
  Serious: No
  Sender: FDA-Public Use
  Company Number: 200510063US

PATIENT
  Age: 48 Year
  Sex: Female

DRUGS (1)
  1. KETEK [Suspect]
     Dosage: PO
     Route: 048

REACTIONS (3)
  - HEADACHE [None]
  - MYDRIASIS [None]
  - VISION BLURRED [None]
